FAERS Safety Report 13584680 (Version 1)
Quarter: 2017Q2

REPORT INFORMATION
  Report Type: Report from Study
  Country: IT (occurrence: IT)
  Receive Date: 20170526
  Receipt Date: 20170526
  Transmission Date: 20170830
  Serious: Yes (Death)
  Sender: FDA-Public Use
  Company Number: IT-CIPLA LTD.-2017IT09174

PATIENT

DRUGS (2)
  1. EPIRUBICIN [Suspect]
     Active Substance: EPIRUBICIN
     Indication: SOFT TISSUE SARCOMA
     Dosage: 60 MG/M2, PER DAY (SHORT INFUSION, DAYS 1 AND 2) EVERY 21 DAYS
  2. IFOSFAMIDE. [Suspect]
     Active Substance: IFOSFAMIDE
     Indication: SOFT TISSUE SARCOMA
     Dosage: 3 G/M^2 PER DAY (DAYS 1, 2, AND 3), REPEATED EVERY 21 DAYS
     Route: 065

REACTIONS (1)
  - Soft tissue sarcoma [Fatal]
